FAERS Safety Report 24298216 (Version 1)
Quarter: 2024Q3

REPORT INFORMATION
  Report Type: Spontaneous
  Country: US (occurrence: None)
  Receive Date: 20240906
  Receipt Date: 20240906
  Transmission Date: 20241016
  Serious: No
  Sender: Public
  Company Number: None

PATIENT
  Sex: Female

DRUGS (1)
  1. OPSUMIT [Suspect]
     Active Substance: MACITENTAN
     Indication: Pulmonary arterial hypertension
     Dosage: FREQUENCY : DAILY;?
     Route: 048
     Dates: start: 202302

REACTIONS (7)
  - Pneumonia [None]
  - Fatigue [None]
  - Dizziness [None]
  - Productive cough [None]
  - Cardiac failure congestive [None]
  - Immune system disorder [None]
  - Infection [None]
